FAERS Safety Report 24284116 (Version 2)
Quarter: 2024Q3

REPORT INFORMATION
  Report Type: Spontaneous
  Country: DE (occurrence: DE)
  Receive Date: 20240905
  Receipt Date: 20240920
  Transmission Date: 20241016
  Serious: Yes (Life-Threatening, Hospitalization)
  Sender: TEVA
  Company Number: DE-TEVA-VS-3238248

PATIENT
  Age: 2 Month
  Sex: Male

DRUGS (3)
  1. MIDAZOLAM [Suspect]
     Active Substance: MIDAZOLAM
     Indication: Seizure
     Route: 065
  2. LEVETIRACETAM [Suspect]
     Active Substance: LEVETIRACETAM
     Indication: Seizure
     Route: 065
  3. LIDOCAINE [Suspect]
     Active Substance: LIDOCAINE
     Indication: Nerve block
     Dosage: ACCIDENTAL IV ADMINISTRATION
     Route: 042

REACTIONS (6)
  - Seizure [Recovered/Resolved]
  - Accidental overdose [Unknown]
  - Toxicity to various agents [Recovered/Resolved]
  - Incorrect route of product administration [Unknown]
  - Tachycardia [Recovered/Resolved]
  - Drug ineffective [Unknown]
